FAERS Safety Report 4978942-8 (Version None)
Quarter: 2006Q2

REPORT INFORMATION
  Report Type: 
  Country: None (occurrence: None)
  Receive Date: 20060419
  Receipt Date: 20060419
  Transmission Date: 20061013
  Serious: Yes (Other)
  Sender: FDA-Public Use
  Company Number: None

PATIENT
  Sex: Female
  Weight: 113.3993 kg

DRUGS (2)
  1. BYETTA [Suspect]
     Indication: DIABETES MELLITUS
     Dosage: 5 MCG 2 X'S DAILY
     Dates: start: 20060322, end: 20060417
  2. BYETTA [Suspect]
     Indication: THYROID DISORDER
     Dosage: 5 MCG 2 X'S DAILY
     Dates: start: 20060322, end: 20060417

REACTIONS (3)
  - AURICULAR SWELLING [None]
  - OEDEMA PERIPHERAL [None]
  - URTICARIA [None]
